FAERS Safety Report 8298789-7 (Version None)
Quarter: 2012Q2

REPORT INFORMATION
  Report Type: 
  Country: None (occurrence: None)
  Receive Date: 20120419
  Receipt Date: 20120406
  Transmission Date: 20120825
  Serious: Yes (Hospitalization, Other)
  Sender: FDA-Public Use
  Company Number: US-ROCHE-1049869

PATIENT
  Age: 43 Year
  Sex: Male

DRUGS (3)
  1. CETUXIMAB [Suspect]
     Indication: SQUAMOUS CELL CARCINOMA
     Dosage: DATE OF LAST DOSE PRIOR TO SAE : 05/MAR/2012
     Dates: start: 20120123, end: 20120312
  2. AVASTIN [Suspect]
     Indication: SQUAMOUS CELL CARCINOMA
     Dosage: DATE OF LAST DOSE PRIOR TO SAE : 05/MAR/2012
     Dates: start: 20120123
  3. CISPLATIN [Suspect]
     Indication: SQUAMOUS CELL CARCINOMA
     Dosage: DATE OF LAST DOSE PRIOR TO SAE : 05/MAR/2012
     Dates: start: 20120123

REACTIONS (9)
  - WHITE BLOOD CELL COUNT DECREASED [None]
  - EMBOLISM [None]
  - THROMBOSIS [None]
  - LYMPHOPENIA [None]
  - NEUTROPHIL COUNT DECREASED [None]
  - ACTIVATED PARTIAL THROMBOPLASTIN TIME [None]
  - ABDOMINAL PAIN [None]
  - URINARY RETENTION [None]
  - BLOOD CREATININE INCREASED [None]
